FAERS Safety Report 11611114 (Version 2)
Quarter: 2015Q4

REPORT INFORMATION
  Report Type: Other
  Country: IT (occurrence: IT)
  Receive Date: 20151008
  Receipt Date: 20151124
  Transmission Date: 20160304
  Serious: Yes (Other)
  Sender: FDA-Public Use
  Company Number: IT-MYLANLABS-2015M1033123

PATIENT

DRUGS (8)
  1. GABAPENTIN MYLAN GENERICS 300MG CAPSULE RIGIDE [Suspect]
     Active Substance: GABAPENTIN
     Indication: NEURALGIA
     Dosage: 300 MG, QD
     Route: 048
     Dates: start: 20150917, end: 20150922
  2. PERINDOPRIL DOC [Concomitant]
     Indication: PRODUCT USED FOR UNKNOWN INDICATION
     Dosage: 4 MG, UNK
     Route: 048
  3. XARENEL [Concomitant]
     Indication: PRODUCT USED FOR UNKNOWN INDICATION
     Dosage: 1 DF, UNK
     Route: 048
  4. TACHIDOL [Concomitant]
     Active Substance: ACETAMINOPHEN\CODEINE PHOSPHATE
     Indication: PRODUCT USED FOR UNKNOWN INDICATION
     Dosage: 500 MG, UNK
     Route: 048
  5. PROTEC                             /00661201/ [Concomitant]
     Indication: PRODUCT USED FOR UNKNOWN INDICATION
     Dosage: 20 MG, UNK
     Route: 048
  6. CARDIOASPIRIN [Concomitant]
     Active Substance: ASPIRIN
     Indication: PRODUCT USED FOR UNKNOWN INDICATION
     Dosage: 100 MG, UNK
     Route: 048
  7. GABAPENTIN MYLAN GENERICS 300MG CAPSULE RIGIDE [Suspect]
     Active Substance: GABAPENTIN
     Indication: RADICULAR PAIN
  8. ATORVASTATIN [Concomitant]
     Active Substance: ATORVASTATIN
     Indication: PRODUCT USED FOR UNKNOWN INDICATION
     Dosage: 20 MG, UNK
     Route: 048

REACTIONS (11)
  - Visual impairment [Unknown]
  - Muscle contractions involuntary [Unknown]
  - Arthralgia [Recovered/Resolved]
  - Dry mouth [Recovered/Resolved]
  - Vertigo [Recovered/Resolved]
  - Back pain [Unknown]
  - Confusional state [Recovered/Resolved]
  - Myalgia [Recovered/Resolved]
  - Sleep disorder [Recovered/Resolved]
  - Mental impairment [Unknown]
  - Headache [Unknown]

NARRATIVE: CASE EVENT DATE: 20150918
